FAERS Safety Report 17978636 (Version 1)
Quarter: 2020Q3

REPORT INFORMATION
  Report Type: Spontaneous
  Country: CN (occurrence: CN)
  Receive Date: 20200703
  Receipt Date: 20200703
  Transmission Date: 20201103
  Serious: Yes (Death, Other)
  Sender: FDA-Public Use
  Company Number: NVSC2020CN184214

PATIENT

DRUGS (3)
  1. PREDNISONE. [Suspect]
     Active Substance: PREDNISONE
     Indication: TAKAYASU^S ARTERITIS
     Dosage: 0.8?1.0 MG/KG/DAY, P.O.
     Route: 065
  2. LEFLUNOMIDE. [Suspect]
     Active Substance: LEFLUNOMIDE
     Indication: TAKAYASU^S ARTERITIS
     Dosage: 20 MG/DAY, P.O.
     Route: 065
  3. PREDNISONE. [Suspect]
     Active Substance: PREDNISONE
     Dosage: 0.1?0.2 MG/KG/DAY
     Route: 065

REACTIONS (4)
  - Cerebrovascular accident [Fatal]
  - Product use in unapproved indication [Unknown]
  - Takayasu^s arteritis [Unknown]
  - Disease progression [Unknown]
